FAERS Safety Report 10399983 (Version 1)
Quarter: 2014Q3

REPORT INFORMATION
  Report Type: Spontaneous
  Country: JP (occurrence: JP)
  Receive Date: 20140821
  Receipt Date: 20140821
  Transmission Date: 20150326
  Serious: Yes (Hospitalization, Other)
  Sender: FDA-Public Use
  Company Number: JP-B.I. PHARMACEUTICALS,INC./RIDGEFIELD-2014-BI-38597NB

PATIENT

DRUGS (2)
  1. AMLODIPINE [Suspect]
     Active Substance: AMLODIPINE BESYLATE
     Indication: SUICIDE ATTEMPT
     Dosage: 580 MG
     Route: 065
     Dates: start: 20140818, end: 20140818
  2. MICARDIS [Suspect]
     Active Substance: TELMISARTAN
     Indication: SUICIDE ATTEMPT
     Dosage: 1280 MG
     Route: 065
     Dates: start: 20140818, end: 20140818

REACTIONS (2)
  - Blood pressure decreased [Unknown]
  - Suicide attempt [Unknown]

NARRATIVE: CASE EVENT DATE: 20140818
